FAERS Safety Report 15902829 (Version 1)
Quarter: 2019Q1

REPORT INFORMATION
  Report Type: Spontaneous
  Country: NL (occurrence: NL)
  Receive Date: 20190202
  Receipt Date: 20190202
  Transmission Date: 20190417
  Serious: Yes (Hospitalization, Other)
  Sender: FDA-Public Use
  Company Number: NL-AUROBINDO-AUR-APL-2019-004587

PATIENT

DRUGS (5)
  1. OXALIPLATIN. [Suspect]
     Active Substance: OXALIPLATIN
     Indication: COLORECTAL CANCER
     Dosage: 85 MILLIGRAM/SQ. METER EVERY 2 WEEKS (MOST RECENT DOSE 11/DEC/2018)
     Route: 042
     Dates: start: 20180614
  2. 5-FLUOROURACIL [Suspect]
     Active Substance: FLUOROURACIL
     Indication: COLORECTAL CANCER
     Dosage: 3200 MILLIGRAM/SQ. METER EVERY 2 WEEKS (MOST RECENT DOSE 11/DEC/2018)
     Route: 042
     Dates: start: 20180614
  3. BEVACIZUMAB. [Suspect]
     Active Substance: BEVACIZUMAB
     Indication: COLORECTAL CANCER
     Dosage: 5 MILLIGRAM/KILOGRAM EVERY 2 WEEKS (MOST RECENT DOSE 11/DEC/2018)
     Route: 042
     Dates: start: 20180614
  4. LEUCOVORIN. [Suspect]
     Active Substance: LEUCOVORIN
     Indication: COLORECTAL CANCER
     Dosage: 400 MILLIGRAM/SQ. METER EVERY 2 WEEKS (MOST RECENT DOSE 11/DEC/2018)
     Route: 042
     Dates: start: 20180614
  5. IRINOTECAN [Suspect]
     Active Substance: IRINOTECAN
     Indication: COLORECTAL CANCER
     Dosage: 165 MILLIGRAM/SQ. METER EVERY 2 WEEKS (MOST RECENT DOSE 11/DEC/2018)
     Route: 042
     Dates: start: 20180614

REACTIONS (1)
  - Meningitis [Unknown]

NARRATIVE: CASE EVENT DATE: 20181221
